FAERS Safety Report 20539145 (Version 1)
Quarter: 2022Q1

REPORT INFORMATION
  Report Type: Spontaneous
  Country: CA (occurrence: CA)
  Receive Date: 20220302
  Receipt Date: 20220302
  Transmission Date: 20220423
  Serious: Yes (Other)
  Sender: FDA-Public Use
  Company Number: CA-JNJFOC-20210934053

PATIENT
  Age: 42 Year

DRUGS (1)
  1. INFLIXIMAB [Suspect]
     Active Substance: INFLIXIMAB
     Indication: Psoriatic arthropathy
     Route: 042

REACTIONS (4)
  - Fibrosis [Not Recovered/Not Resolved]
  - Myalgia [Not Recovered/Not Resolved]
  - Oral infection [Not Recovered/Not Resolved]
  - Off label use [Not Recovered/Not Resolved]
